FAERS Safety Report 20533377 (Version 1)
Quarter: 2022Q1

REPORT INFORMATION
  Report Type: Report from Study
  Country: US (occurrence: US)
  Receive Date: 20220301
  Receipt Date: 20220301
  Transmission Date: 20220424
  Serious: Yes (Death)
  Sender: FDA-Public Use
  Company Number: US-DUCHESNAY-2022US000021

PATIENT
  Sex: Female

DRUGS (1)
  1. OSPEMIFENE [Suspect]
     Active Substance: OSPEMIFENE
     Indication: Urinary tract infection
     Dosage: 60 MILLIGRAM ONCE A DAY
     Route: 048
     Dates: start: 20210909

REACTIONS (2)
  - Death [Fatal]
  - Product use issue [Unknown]
